FAERS Safety Report 6790462-7 (Version None)
Quarter: 2010Q2

REPORT INFORMATION
  Report Type: 
  Country: None (occurrence: None)
  Receive Date: 20100624
  Receipt Date: 20100614
  Transmission Date: 20101027
  Serious: Yes (Other)
  Sender: FDA-Public Use
  Company Number: US-ROCHE-699032

PATIENT
  Sex: Female
  Weight: 48.9 kg

DRUGS (2)
  1. BONIVA [Suspect]
     Indication: OSTEOPOROSIS
     Route: 042
     Dates: start: 20100412
  2. NEXIUM [Concomitant]
     Indication: GASTRIC ULCER

REACTIONS (2)
  - BONE PAIN [None]
  - MYALGIA [None]
